FAERS Safety Report 14166662 (Version 4)
Quarter: 2017Q4

REPORT INFORMATION
  Report Type: Report from Study
  Country: DE (occurrence: DE)
  Receive Date: 20171107
  Receipt Date: 20171125
  Transmission Date: 20180321
  Serious: Yes (Hospitalization)
  Sender: FDA-Public Use
  Company Number: DE-AMGEN-DEUCT2017166838

PATIENT
  Age: 5 Year
  Sex: Male
  Weight: 19.5 kg

DRUGS (22)
  1. MTX [Concomitant]
     Active Substance: METHOTREXATE SODIUM
     Indication: ACUTE LYMPHOCYTIC LEUKAEMIA
     Dosage: UNK
     Dates: start: 20171006, end: 20171020
  2. VORICONAZOL [Concomitant]
     Active Substance: VORICONAZOLE
     Dosage: 100 MG, UNK
     Route: 048
     Dates: start: 20170527
  3. OTRIVEN [Concomitant]
     Active Substance: XYLOMETAZOLINE HYDROCHLORIDE
     Dosage: 1 GTT, UNK
     Route: 045
     Dates: start: 20171001
  4. FOLSAN [Concomitant]
     Active Substance: FOLIC ACID
     Dosage: 5 MG, UNK
     Route: 048
     Dates: start: 20170517
  5. DAUNOXOME [Concomitant]
     Active Substance: DAUNORUBICIN CITRATE
     Indication: ACUTE LYMPHOCYTIC LEUKAEMIA
     Dosage: UNK
     Dates: start: 20171006, end: 20171013
  6. BLINATUMOMAB [Suspect]
     Active Substance: BLINATUMOMAB
     Indication: ACUTE LYMPHOCYTIC LEUKAEMIA
     Dosage: 15 MUG/M2, UNK
     Route: 042
     Dates: start: 20170526, end: 20171005
  7. SUMMAVIT [Concomitant]
     Dosage: 1 UNK, UNK
     Route: 048
     Dates: start: 20170527
  8. DEXAMETHASONE. [Concomitant]
     Active Substance: DEXAMETHASONE
     Indication: ACUTE LYMPHOCYTIC LEUKAEMIA
     Dosage: 3-4.5 MG, UNK
     Dates: start: 20171002, end: 20171028
  9. MAGNESIUM VERLA [Concomitant]
     Active Substance: MAGNESIUM
     Dosage: 1 GTT, UNK
     Route: 048
     Dates: start: 20160623
  10. VITAMIN D [Concomitant]
     Active Substance: CHOLECALCIFEROL
     Dosage: 500 UNK, UNK
     Route: 048
     Dates: start: 20170517
  11. URSOFALK [Concomitant]
     Active Substance: URSODIOL
     Dosage: 250 MG, UNK
     Route: 048
     Dates: start: 20170517
  12. CLINDAMYCIN. [Concomitant]
     Active Substance: CLINDAMYCIN
     Dosage: 200 MG, UNK
     Route: 042
     Dates: start: 20170930, end: 20171005
  13. AMBISOME [Concomitant]
     Active Substance: AMPHOTERICIN B
     Dosage: 60 MG, UNK
     Route: 042
     Dates: start: 20171001, end: 20171005
  14. COTRIM [Concomitant]
     Active Substance: SULFAMETHOXAZOLE\TRIMETHOPRIM
     Dosage: 80 MG, UNK
     Route: 048
     Dates: start: 20170517
  15. VINCRISTIN [Concomitant]
     Active Substance: VINCRISTINE
     Indication: ACUTE LYMPHOCYTIC LEUKAEMIA
     Dosage: UNK
     Dates: start: 20171006, end: 20171013
  16. TAZOBAC [Concomitant]
     Active Substance: PIPERACILLIN SODIUM\TAZOBACTAM SODIUM
     Dosage: 2-2.5 G, UNK
     Route: 042
     Dates: start: 20170929, end: 20171024
  17. ASPARAGINASE [Concomitant]
     Active Substance: ASPARAGINASE
     Indication: ACUTE LYMPHOCYTIC LEUKAEMIA
     Dosage: UNK
     Dates: start: 20171006, end: 20171017
  18. PREDNISON [Concomitant]
     Active Substance: PREDNISONE
     Indication: ACUTE LYMPHOCYTIC LEUKAEMIA
     Dosage: UNK
     Dates: start: 20171006, end: 20171020
  19. METAMIZOL [Concomitant]
     Active Substance: METAMIZOLE SODIUM
     Dosage: 200 MG IV, 250 MG ORAL UNK
     Dates: start: 20170818
  20. MEROPENEM. [Concomitant]
     Active Substance: MEROPENEM
     Dosage: 400 MG, UNK
     Route: 042
     Dates: start: 20171001, end: 20171004
  21. PARACETAMOL [Concomitant]
     Active Substance: ACETAMINOPHEN
     Dosage: 250 MG, UNK
     Route: 042
     Dates: start: 20170707
  22. ARA-C [Concomitant]
     Active Substance: CYTARABINE
     Indication: ACUTE LYMPHOCYTIC LEUKAEMIA
     Dosage: UNK
     Dates: start: 20171006, end: 20171020

REACTIONS (3)
  - Febrile neutropenia [Recovered/Resolved]
  - Pseudomonas infection [Recovered/Resolved]
  - Hypoalbuminaemia [Recovered/Resolved]

NARRATIVE: CASE EVENT DATE: 20171017
